FAERS Safety Report 10136173 (Version 3)
Quarter: 2014Q3

REPORT INFORMATION
  Report Type: Spontaneous
  Country: JP (occurrence: JP)
  Receive Date: 20140429
  Receipt Date: 20140904
  Transmission Date: 20150326
  Serious: Yes (Hospitalization)
  Sender: FDA-Public Use
  Company Number: JP-ROCHE-1387996

PATIENT
  Age: 71 Year
  Sex: Male

DRUGS (5)
  1. 5-FU [Suspect]
     Active Substance: FLUOROURACIL
     Indication: COLON CANCER RECURRENT
     Route: 040
     Dates: start: 2012, end: 2012
  2. OXALIPLATIN. [Concomitant]
     Active Substance: OXALIPLATIN
     Indication: COLON CANCER RECURRENT
     Route: 041
     Dates: start: 2012, end: 2012
  3. 5-FU [Suspect]
     Active Substance: FLUOROURACIL
     Indication: COLON CANCER RECURRENT
     Route: 041
     Dates: start: 2012, end: 2012
  4. AVASTIN [Suspect]
     Active Substance: BEVACIZUMAB
     Indication: COLON CANCER RECURRENT
     Route: 041
     Dates: start: 2012, end: 2012
  5. LEVOFOLINATE [Concomitant]
     Active Substance: LEVOLEUCOVORIN CALCIUM
     Indication: COLON CANCER RECURRENT
     Route: 041
     Dates: start: 2012, end: 2012

REACTIONS (4)
  - Hyperammonaemia [Recovered/Resolved]
  - Neutrophil count decreased [Recovering/Resolving]
  - Altered state of consciousness [Recovering/Resolving]
  - White blood cell count decreased [Recovering/Resolving]

NARRATIVE: CASE EVENT DATE: 2012
